FAERS Safety Report 10360630 (Version 1)
Quarter: 2014Q3

REPORT INFORMATION
  Report Type: Spontaneous
  Country: DE (occurrence: None)
  Receive Date: 20140731
  Receipt Date: 20140731
  Transmission Date: 20150326
  Serious: Yes (Hospitalization)
  Sender: FDA-Public Use
  Company Number: DE-H14001-14-00321

PATIENT
  Age: 72 Year
  Sex: Female
  Weight: 90 kg

DRUGS (8)
  1. AMLODIPINE (AMLODIPINE) (UNKNOWN) (AMLODIPINE) [Concomitant]
  2. TIMOLOL (TIMOLOL) (DROPS) (TIMOLOL) [Concomitant]
  3. EREMFAT [Suspect]
     Active Substance: RIFAMPIN
     Indication: DEVICE RELATED INFECTION
     Dosage: (900 MG), INTRAVENOUS (NOT OTHERWISE SPECIFIED)?
     Route: 042
     Dates: start: 20140628, end: 20140711
  4. SIMVASTATIN (SIMVASTATIN) (UNKNOWN) (SIMVASTATIN) [Concomitant]
  5. BISOPRLOL (BISOPROLOL) (UNKNOWN) (BISOPROLOL) [Concomitant]
  6. COAPROVEL (KARVEA HCT) (UNKNOWN) (HYDROCHLOROTHIAZIDE, IRBESARTAN0 [Concomitant]
  7. VANCOMYCIN [Suspect]
     Active Substance: VANCOMYCIN
     Indication: DEVICE RELATED INFECTION
     Dosage: (2000 MG), INTRAVENOUS (NOT OTHERWISE SPECIFIED)?
     Route: 042
     Dates: start: 20140628, end: 20140711
  8. MOXONIDIN (MOXONIDINE) (UNKNOWN) (MOXONIDINE)? [Concomitant]

REACTIONS (2)
  - Drug ineffective [None]
  - Hypertension [None]

NARRATIVE: CASE EVENT DATE: 20140702
